FAERS Safety Report 6644739-6 (Version None)
Quarter: 2010Q1

REPORT INFORMATION
  Report Type: 
  Country: None (occurrence: None)
  Receive Date: 20100322
  Receipt Date: 20100318
  Transmission Date: 20100710
  Serious: Yes (Death)
  Sender: FDA-Public Use
  Company Number: JP-ELI_LILLY_AND_COMPANY-JP201001002380

PATIENT
  Sex: Male
  Weight: 40 kg

DRUGS (4)
  1. GEMZAR [Suspect]
     Indication: LUNG SQUAMOUS CELL CARCINOMA STAGE IV
     Dosage: 1500 MG, OTHER
     Route: 042
     Dates: start: 20091201, end: 20100106
  2. NAVELBINE [Concomitant]
     Indication: LUNG SQUAMOUS CELL CARCINOMA STAGE IV
     Dosage: 37 MG, UNK
     Route: 042
     Dates: start: 20091201, end: 20100106
  3. DECADRON /00016002/ [Concomitant]
     Indication: PROPHYLAXIS
     Dosage: 8 MG, UNK
     Route: 042
     Dates: start: 20100106, end: 20100106
  4. ONDANSETRON HYDROCHLORIDE [Concomitant]
     Indication: PROPHYLAXIS
     Dosage: 4 MG, UNK
     Route: 042
     Dates: start: 20100106, end: 20100106

REACTIONS (2)
  - ANAPHYLACTIC SHOCK [None]
  - LARYNGEAL OEDEMA [None]
